FAERS Safety Report 6275731-1 (Version None)
Quarter: 2009Q3

REPORT INFORMATION
  Report Type: 
  Country: None (occurrence: None)
  Receive Date: 20090721
  Receipt Date: 20090714
  Transmission Date: 20100115
  Serious: Yes (Other)
  Sender: FDA-Public Use
  Company Number: PHHY2009US28894

PATIENT
  Age: 36 Year
  Sex: Male

DRUGS (6)
  1. CYCLOSPORINE [Suspect]
     Indication: HEART TRANSPLANT
     Dosage: UNK
  2. MYCOPHENOLATE MOFETIL [Concomitant]
     Indication: HEART TRANSPLANT
     Dosage: 1500 MG, TWICE DAILY
  3. SOLU-MEDROL [Concomitant]
     Indication: HEART TRANSPLANT
     Dosage: 500 MG
  4. SOLU-MEDROL [Concomitant]
     Dosage: 125 MG, EVERY 8 HOURS, FOR 3 DOSES
  5. PREDNISONE TAB [Concomitant]
     Indication: HEART TRANSPLANT
     Dosage: 100 MG DAILY
     Route: 048
  6. PREDNISONE TAB [Concomitant]
     Dosage: TAPERED TO 15 MG TWICE DALIY
     Route: 048

REACTIONS (5)
  - ACUTE HIV INFECTION [None]
  - CARDIOVASCULAR DISORDER [None]
  - GRAFT DYSFUNCTION [None]
  - HEART TRANSPLANT REJECTION [None]
  - ISCHAEMIC CARDIOMYOPATHY [None]
